FAERS Safety Report 18310976 (Version 2)
Quarter: 2020Q4

REPORT INFORMATION
  Report Type: Spontaneous
  Country: JP (occurrence: JP)
  Receive Date: 20200924
  Receipt Date: 20201108
  Transmission Date: 20210113
  Serious: Yes (Hospitalization)
  Sender: FDA-Public Use
  Company Number: NVSJ2020JP009251

PATIENT
  Age: 89 Year
  Sex: Female

DRUGS (1)
  1. EXELON PATCH [Suspect]
     Active Substance: RIVASTIGMINE
     Indication: DEMENTIA ALZHEIMER^S TYPE
     Dosage: UNK
     Route: 062

REACTIONS (2)
  - Fall [Unknown]
  - Femur fracture [Unknown]
